FAERS Safety Report 6172887-6 (Version None)
Quarter: 2009Q2

REPORT INFORMATION
  Report Type: 
  Country: None (occurrence: None)
  Receive Date: 20090428
  Receipt Date: 20090410
  Transmission Date: 20091009
  Serious: Yes (Death)
  Sender: FDA-Public Use
  Company Number: B0569623A

PATIENT
  Age: 8 Month
  Sex: 0

DRUGS (6)
  1. BUSULPHAN (FORMULATION UNKNOWN)(GENERIC) (BUSULFAN) [Suspect]
  2. PREDNISOLONE [Suspect]
  3. CYCLOSPORINE [Suspect]
     Indication: BONE MARROW TRANSPLANT
  4. CYCLOSPORINE [Suspect]
     Indication: PROPHYLAXIS AGAINST GRAFT VERSUS HOST DISEASE
  5. METHOTREXATE [Suspect]
     Indication: BONE MARROW TRANSPLANT
  6. CYCLOPHOSPHAMIDE (FORMULATION UNKNOWN) (GENERIC)(CYCLOPHOSPHAMIDE) [Concomitant]
     Indication: BONE MARROW TRANSPLANT

REACTIONS (1)
  - VENOOCCLUSIVE DISEASE [None]
